FAERS Safety Report 9576187 (Version 1)
Quarter: 2013Q4

REPORT INFORMATION
  Report Type: Spontaneous
  Country: US (occurrence: US)
  Receive Date: 20131001
  Receipt Date: 20131001
  Transmission Date: 20140711
  Serious: No
  Sender: FDA-Public Use
  Company Number: US-AMGEN-USASP2013001555

PATIENT
  Sex: Male
  Weight: 136.5 kg

DRUGS (6)
  1. ENBREL [Suspect]
     Indication: PRODUCT USED FOR UNKNOWN INDICATION
     Dosage: 50 MG, 2 TIMES/WK
     Route: 058
  2. AMLODIPINE [Concomitant]
     Dosage: 2.5 MG, UNK
  3. METFORMIN [Concomitant]
     Dosage: 1000 MG, UNK
  4. ALLOPURINOL [Concomitant]
     Dosage: 100 MG, UNK
  5. TRIAMTERENE AND HYDROCHLOROTHIAZID [Concomitant]
     Dosage: 37.5-25
  6. POTASSIUM [Concomitant]
     Dosage: 25 MEQ EF

REACTIONS (1)
  - Sinusitis [Unknown]
